FAERS Safety Report 10011748 (Version 1)
Quarter: 2014Q1

REPORT INFORMATION
  Report Type: Spontaneous
  Country: US (occurrence: US)
  Receive Date: 20140314
  Receipt Date: 20140314
  Transmission Date: 20141002
  Serious: Yes (Disabling)
  Sender: FDA-Public Use
  Company Number: US-PFIZER INC-2014074033

PATIENT
  Age: 55 Year
  Sex: Female
  Weight: 77.1 kg

DRUGS (7)
  1. EFFEXOR XR [Suspect]
     Dosage: 450 MG (TAKING 3 CAPSULES OF 150MG IN MORNING), 1X/DAY
     Route: 048
  2. SYNTHROID [Concomitant]
     Dosage: 112 UG, UNK
  3. CARDIZEM [Concomitant]
     Dosage: 90 MG, 3X/DAY
  4. MAXZIDE [Concomitant]
     Dosage: UNK, 1X/DAY
  5. TRAZODONE [Concomitant]
     Dosage: 150 MG, 1X/DAY
  6. RISPERIDONE [Concomitant]
     Dosage: 2 MG, 1X/DAY
  7. LORTAB [Concomitant]
     Dosage: 10 MG, 4X/DAY

REACTIONS (4)
  - Intentional drug misuse [Unknown]
  - Systemic lupus erythematosus [Unknown]
  - Device breakage [Unknown]
  - Product lot number issue [Unknown]
